FAERS Safety Report 6682972-8 (Version None)
Quarter: 2010Q2

REPORT INFORMATION
  Report Type: 
  Country: None (occurrence: None)
  Receive Date: 20100415
  Receipt Date: 20100412
  Transmission Date: 20101027
  Serious: Yes (Other)
  Sender: FDA-Public Use
  Company Number: PL-ROCHE-696847

PATIENT
  Age: 68 Year
  Sex: Female
  Weight: 65 kg

DRUGS (2)
  1. BONIVA [Suspect]
     Indication: OSTEOPOROSIS
     Dosage: DOSE REPORTED AS 150, STOP DATE REPORTED AS APRIL 2010
     Route: 048
     Dates: start: 20100201
  2. KAMIREN [Concomitant]
     Indication: HYPERTENSION
     Dosage: FREQUENCY REPORTED AS 1X1
     Route: 048

REACTIONS (1)
  - LEUKOPENIA [None]
